FAERS Safety Report 4771880-5 (Version None)
Quarter: 2005Q3

REPORT INFORMATION
  Report Type: 
  Country: None (occurrence: None)
  Receive Date: 20050916
  Receipt Date: 20050907
  Transmission Date: 20060218
  Serious: Yes (Death, Hospitalization)
  Sender: FDA-Public Use
  Company Number: US-JNJFOC-20050902355

PATIENT
  Age: 39 Year
  Sex: Female

DRUGS (3)
  1. CYCLOBENZAPRINE HCL [Suspect]
     Indication: SUICIDE ATTEMPT
     Route: 048
  2. NORTRIPTYLINE HCL [Suspect]
     Indication: SUICIDE ATTEMPT
     Route: 048
  3. MORPHINE [Suspect]
     Indication: SUICIDE ATTEMPT
     Route: 048

REACTIONS (4)
  - COMA [None]
  - COMPLETED SUICIDE [None]
  - HEPATOCELLULAR DAMAGE [None]
  - MULTIPLE DRUG OVERDOSE [None]
